FAERS Safety Report 6298910-6 (Version None)
Quarter: 2009Q3

REPORT INFORMATION
  Report Type: 
  Country: None (occurrence: None)
  Receive Date: 20090806
  Receipt Date: 20090729
  Transmission Date: 20100115
  Serious: Yes (Life-Threatening, Hospitalization)
  Sender: FDA-Public Use
  Company Number: FR-PFIZER INC-2009247039

PATIENT
  Age: 61 Year

DRUGS (7)
  1. AMLOR [Suspect]
     Dosage: 150 MG, SINGLE
     Route: 048
     Dates: start: 20090630, end: 20090630
  2. COTAREG [Suspect]
     Dosage: 30 DF, SINGLE
     Route: 048
     Dates: start: 20090630, end: 20090630
  3. SIMVASTATIN [Concomitant]
     Dosage: 40 MG, 1X/DAY (IN THE EVENING)
  4. OMEPRAZOLE [Concomitant]
     Dosage: 20 MG, 1X/DAY (IN THE EVENING)
  5. PARACETAMOL [Concomitant]
     Dosage: 1 G EVERY 6 HOURS, AS NEEDED
  6. TRAMADOL [Concomitant]
     Dosage: 1 DF, 2X/DAY (IN THE MORNING AND IN THE EVENING)
  7. NOVOMIX [Concomitant]
     Dosage: 14 U IN THE MORNING AND 18 U IN THE EVENING

REACTIONS (3)
  - HYPOTENSION [None]
  - OVERDOSE [None]
  - RENAL FAILURE ACUTE [None]
